FAERS Safety Report 26130392 (Version 1)
Quarter: 2025Q4

REPORT INFORMATION
  Report Type: Spontaneous
  Country: CN (occurrence: CN)
  Receive Date: 20251208
  Receipt Date: 20251208
  Transmission Date: 20260118
  Serious: Yes (Hospitalization, Other)
  Sender: NOVO NORDISK
  Company Number: CN-NOVOPROD-1573736

PATIENT
  Sex: Male

DRUGS (3)
  1. RYZODEG 70/30 [Suspect]
     Active Substance: INSULIN ASPART\INSULIN DEGLUDEC
     Indication: Type 2 diabetes mellitus
     Dosage: 18 IU, QD(10U BEFORE BREAKFAST, 8U BEFORE DINNER)
     Dates: start: 2017
  2. DAPAGLIFLOZIN [Suspect]
     Active Substance: DAPAGLIFLOZIN
     Indication: Type 1 diabetes mellitus
     Dosage: UNK
     Dates: end: 202509
  3. MIGLITOL [Concomitant]
     Active Substance: MIGLITOL
     Indication: Type 1 diabetes mellitus
     Dosage: ONE TABLET WITH EACH MEAL, TID

REACTIONS (4)
  - Type 1 diabetes mellitus [Unknown]
  - Blood glucose abnormal [Unknown]
  - Hypotension [Unknown]
  - Diabetes mellitus inadequate control [Unknown]

NARRATIVE: CASE EVENT DATE: 20230101
